FAERS Safety Report 6735329-5 (Version None)
Quarter: 2010Q2

REPORT INFORMATION
  Report Type: 
  Country: None (occurrence: None)
  Receive Date: 20100520
  Receipt Date: 20100520
  Transmission Date: 20101027
  Serious: Yes (Hospitalization)
  Sender: FDA-Public Use
  Company Number: None

PATIENT
  Age: 73 Year
  Sex: Male
  Weight: 84.8226 kg

DRUGS (2)
  1. BENADRYL [Suspect]
     Indication: HERPES ZOSTER
     Dosage: 2.5 MG 4-6 HR
     Dates: start: 20100412, end: 20100430
  2. BENADRYL [Suspect]
     Indication: PRURITUS
     Dosage: 2.5 MG 4-6 HR
     Dates: start: 20100412, end: 20100430

REACTIONS (2)
  - CONFUSIONAL STATE [None]
  - INCOHERENT [None]
